FAERS Safety Report 5962977-2 (Version None)
Quarter: 2008Q4

REPORT INFORMATION
  Report Type: 
  Country: None (occurrence: None)
  Receive Date: 20081119
  Receipt Date: 20081112
  Transmission Date: 20090506
  Serious: Yes (Hospitalization)
  Sender: FDA-Public Use
  Company Number: WAES 0810USA03812

PATIENT
  Age: 70 Year
  Sex: Male

DRUGS (11)
  1. CAP APREPITANT [Suspect]
     Indication: PROPHYLAXIS OF NAUSEA AND VOMITING
     Route: 048
     Dates: start: 20081008, end: 20081010
  2. DEXAMETHASONE [Suspect]
     Indication: PROPHYLAXIS OF NAUSEA AND VOMITING
     Dosage: 12 MG; 8MG
     Route: 048
     Dates: start: 20081008, end: 20081008
  3. DEXAMETHASONE [Suspect]
     Indication: PROPHYLAXIS OF NAUSEA AND VOMITING
     Dosage: 12 MG; 8MG
     Route: 048
     Dates: start: 20081009, end: 20081011
  4. PLACEBO (UNSPECIFIED) [Suspect]
     Indication: PROPHYLAXIS OF NAUSEA AND VOMITING
     Dosage: INJ
     Dates: start: 20081008, end: 20081008
  5. ONDANSETRON HCL [Suspect]
     Indication: PROPHYLAXIS OF NAUSEA AND VOMITING
     Dosage: 50 ML/1X IV
     Route: 042
     Dates: start: 20081008, end: 20081008
  6. TAB BLINDED THERAPY [Suspect]
     Indication: PROPHYLAXIS OF NAUSEA AND VOMITING
     Route: 048
     Dates: start: 20081010, end: 20081011
  7. ISCOVER [Concomitant]
  8. NAVELBINE [Concomitant]
  9. TILIDIN [Concomitant]
  10. CISPLATIN [Concomitant]
  11. OMEPRAZOLE [Concomitant]

REACTIONS (1)
  - FAECALOMA [None]
